FAERS Safety Report 4809122-4 (Version None)
Quarter: 2005Q4

REPORT INFORMATION
  Report Type: 
  Country: None (occurrence: None)
  Receive Date: 20051025
  Receipt Date: 20051019
  Transmission Date: 20060501
  Serious: Yes (Death, Other)
  Sender: FDA-Public Use
  Company Number: PHBS2005SE15394

PATIENT
  Age: 66 Year
  Sex: Male

DRUGS (6)
  1. TEGRETOL [Suspect]
     Indication: GRAND MAL CONVULSION
     Dosage: 400 MG/DAY
     Route: 048
     Dates: end: 20050603
  2. DEXOFEN [Suspect]
     Indication: PAIN IN EXTREMITY
     Dosage: 400 MG/DAY
     Route: 048
     Dates: start: 20030301
  3. MOVICOL [Concomitant]
  4. STESOLID [Concomitant]
  5. FUROSEMIDE [Concomitant]
  6. OXASCAND [Concomitant]

REACTIONS (8)
  - ANXIETY [None]
  - DRUG INEFFECTIVE [None]
  - DRUG INTERACTION [None]
  - DRUG LEVEL INCREASED [None]
  - DRUG TOXICITY [None]
  - DYSPNOEA [None]
  - PNEUMONIA [None]
  - PYREXIA [None]
